FAERS Safety Report 5759528-4 (Version None)
Quarter: 2008Q2

REPORT INFORMATION
  Report Type: 
  Country: None (occurrence: None)
  Receive Date: 20080604
  Receipt Date: 20080604
  Transmission Date: 20081010
  Serious: Yes (Other)
  Sender: FDA-Public Use
  Company Number: None

PATIENT
  Sex: Female
  Weight: 55.7924 kg

DRUGS (1)
  1. DIGITEK .25 MG - MYLAN BERTEK [Suspect]
     Indication: CARDIAC FAILURE CONGESTIVE
     Dosage: .25 MG 1 DAILY
     Dates: start: 20080301, end: 20080503

REACTIONS (1)
  - ATRIAL FIBRILLATION [None]
